FAERS Safety Report 6203905-4 (Version None)
Quarter: 2009Q2

REPORT INFORMATION
  Report Type: 
  Country: None (occurrence: None)
  Receive Date: 20090527
  Receipt Date: 20090519
  Transmission Date: 20091009
  Serious: Yes (Other)
  Sender: FDA-Public Use
  Company Number: A0776427A

PATIENT
  Age: 13 Year
  Sex: Male

DRUGS (5)
  1. TYKERB [Suspect]
     Indication: BRAIN NEOPLASM
     Dosage: 500MG TWICE PER DAY
     Route: 048
     Dates: start: 20090301, end: 20090401
  2. CELEBREX [Concomitant]
     Indication: DRUG USE FOR UNKNOWN INDICATION
     Route: 048
  3. KYTRIL [Concomitant]
     Indication: DRUG USE FOR UNKNOWN INDICATION
  4. AVASTIN [Concomitant]
  5. NUTRITIONAL SUPPLEMENT [Concomitant]

REACTIONS (4)
  - HEMIPARESIS [None]
  - NAUSEA [None]
  - NERVOUS SYSTEM DISORDER [None]
  - RASH [None]
